FAERS Safety Report 12416303 (Version 3)
Quarter: 2016Q2

REPORT INFORMATION
  Report Type: Spontaneous
  Country: JP (occurrence: JP)
  Receive Date: 20160530
  Receipt Date: 20160613
  Transmission Date: 20160815
  Serious: Yes (Other)
  Sender: FDA-Public Use
  Company Number: JP-PFIZER INC-2016269166

PATIENT
  Sex: Male

DRUGS (1)
  1. CHAMPIX [Suspect]
     Active Substance: VARENICLINE TARTRATE
     Dosage: UNK
     Route: 048
     Dates: start: 20160509, end: 20160518

REACTIONS (5)
  - White blood cell count increased [Unknown]
  - Breast discomfort [Unknown]
  - Eczema [Unknown]
  - Lung neoplasm malignant [Unknown]
  - Anaemia [Unknown]

NARRATIVE: CASE EVENT DATE: 20160518
